FAERS Safety Report 19026303 (Version 2)
Quarter: 2021Q2

REPORT INFORMATION
  Report Type: Report from Study
  Country: US (occurrence: US)
  Receive Date: 20210318
  Receipt Date: 20210407
  Transmission Date: 20210717
  Serious: Yes (Death, Other)
  Sender: FDA-Public Use
  Company Number: US-ELI_LILLY_AND_COMPANY-US202103006265

PATIENT
  Age: 36 Year
  Sex: Male

DRUGS (5)
  1. ALIMTA [Suspect]
     Active Substance: PEMETREXED DISODIUM
     Indication: PERITONEAL MESOTHELIOMA MALIGNANT
     Dosage: UNK, CYCLICAL
     Route: 065
  2. CISPLATIN. [Concomitant]
     Active Substance: CISPLATIN
     Indication: PERITONEAL MESOTHELIOMA MALIGNANT
     Dosage: UNK, CYCLICAL
     Route: 065
  3. PEMBROLIZUMAB. [Concomitant]
     Active Substance: PEMBROLIZUMAB
     Indication: PERITONEAL MESOTHELIOMA MALIGNANT
     Dosage: UNK, CYCLICAL
     Route: 065
  4. GEMCITABINE HYDROCHLORIDE. [Suspect]
     Active Substance: GEMCITABINE HYDROCHLORIDE
     Indication: PERITONEAL MESOTHELIOMA MALIGNANT
     Dosage: UNK, UNKNOWN
     Route: 065
  5. BEVACIZUMAB. [Concomitant]
     Active Substance: BEVACIZUMAB
     Indication: PERITONEAL MESOTHELIOMA MALIGNANT
     Dosage: UNK, CYCLICAL
     Route: 065

REACTIONS (3)
  - Off label use [Unknown]
  - Intestinal perforation [Unknown]
  - Malignant neoplasm progression [Fatal]
